FAERS Safety Report 19226209 (Version 2)
Quarter: 2021Q2

REPORT INFORMATION
  Report Type: Report from Study
  Country: DE (occurrence: DE)
  Receive Date: 20210506
  Receipt Date: 20210512
  Transmission Date: 20210717
  Serious: Yes (Hospitalization, Other)
  Sender: FDA-Public Use
  Company Number: DE-EXELIXIS-XL18420031984

PATIENT

DRUGS (3)
  1. XL184 [Suspect]
     Active Substance: CABOZANTINIB
     Dosage: 40 MG
  2. XGEVA [Concomitant]
     Active Substance: DENOSUMAB
     Indication: ADVERSE EVENT
     Dosage: UNK
  3. XL184 [Suspect]
     Active Substance: CABOZANTINIB
     Indication: RENAL CELL CARCINOMA
     Dosage: 20 MG
     Dates: start: 20171214

REACTIONS (20)
  - Pruritus [Recovered/Resolved]
  - Fatigue [Recovered/Resolved with Sequelae]
  - Impaired healing [Recovered/Resolved]
  - Pulmonary embolism [Recovered/Resolved]
  - Angiopathy [Recovered/Resolved]
  - Nausea [Recovered/Resolved]
  - Bronchitis [Recovered/Resolved]
  - Pulmonary infarction [Recovered/Resolved]
  - Pneumonia [Recovered/Resolved]
  - Malignant neoplasm progression [Not Recovered/Not Resolved]
  - Diarrhoea [Recovered/Resolved]
  - Stomatitis [Recovered/Resolved]
  - Osteoarthritis [Recovered/Resolved]
  - Metastases to peritoneum [Recovered/Resolved]
  - Diarrhoea [Recovered/Resolved]
  - Palmar-plantar erythrodysaesthesia syndrome [Recovered/Resolved]
  - Diarrhoea [Recovered/Resolved]
  - Pneumonia [Not Recovered/Not Resolved]
  - Diarrhoea [Recovering/Resolving]
  - Cachexia [Recovered/Resolved]

NARRATIVE: CASE EVENT DATE: 20170622
